FAERS Safety Report 4360083-4 (Version None)
Quarter: 2004Q2

REPORT INFORMATION
  Report Type: 
  Country: None (occurrence: None)
  Receive Date: 20040519
  Receipt Date: 20040503
  Transmission Date: 20050107
  Serious: Yes (Other)
  Sender: FDA-Public Use
  Company Number: NL-JNJFOC-20040501546

PATIENT
  Age: 5 Month
  Sex: Female

DRUGS (1)
  1. DAKTARIN [Suspect]
     Route: 049

REACTIONS (2)
  - DYSPNOEA [None]
  - VOMITING [None]
